FAERS Safety Report 10645536 (Version 1)
Quarter: 2014Q4

REPORT INFORMATION
  Report Type: Spontaneous
  Country: US (occurrence: US)
  Receive Date: 20141211
  Receipt Date: 20141211
  Transmission Date: 20150529
  Serious: Yes (Hospitalization)
  Sender: FDA-Public Use
  Company Number: US-ELI_LILLY_AND_COMPANY-US201412001284

PATIENT
  Sex: Male

DRUGS (4)
  1. CELEBREX [Concomitant]
     Active Substance: CELECOXIB
  2. NEXIUM [Concomitant]
     Active Substance: ESOMEPRAZOLE MAGNESIUM
  3. TOPROL XL [Concomitant]
     Active Substance: METOPROLOL SUCCINATE
  4. CIALIS [Suspect]
     Active Substance: TADALAFIL
     Indication: ERECTILE DYSFUNCTION
     Dosage: 20 MG, PRN
     Route: 048

REACTIONS (3)
  - Intentional product misuse [Recovered/Resolved]
  - Intervertebral disc degeneration [Unknown]
  - Drug ineffective [Unknown]
